FAERS Safety Report 9905749 (Version 1)
Quarter: 2014Q1

REPORT INFORMATION
  Report Type: Spontaneous
  Country: US (occurrence: US)
  Receive Date: 20140218
  Receipt Date: 20140218
  Transmission Date: 20141002
  Serious: No
  Sender: FDA-Public Use
  Company Number: US-GILEAD-2012-0052459

PATIENT
  Age: 33 Year
  Sex: Female

DRUGS (4)
  1. LETAIRIS [Suspect]
     Indication: PRODUCT USED FOR UNKNOWN INDICATION
     Dosage: UNK
     Route: 048
  2. TYVASO [Concomitant]
  3. AZATHIOPRINE [Suspect]
  4. COUMADIN                           /00014802/ [Concomitant]

REACTIONS (4)
  - Gastric ulcer [Not Recovered/Not Resolved]
  - Diarrhoea [Not Recovered/Not Resolved]
  - International normalised ratio decreased [Unknown]
  - Headache [Not Recovered/Not Resolved]
